FAERS Safety Report 8445220-4 (Version None)
Quarter: 2012Q2

REPORT INFORMATION
  Report Type: 
  Country: None (occurrence: None)
  Receive Date: 20120618
  Receipt Date: 20120606
  Transmission Date: 20120825
  Serious: Yes (Hospitalization, Other)
  Sender: FDA-Public Use
  Company Number: US-ROCHE-789959

PATIENT
  Sex: Male
  Weight: 81.72 kg

DRUGS (2)
  1. ACCUTANE [Suspect]
     Indication: ACNE
     Route: 048
     Dates: start: 19950101, end: 19970101
  2. ACCUTANE [Suspect]
     Dates: start: 19980101, end: 19990101

REACTIONS (6)
  - EMOTIONAL DISTRESS [None]
  - COLITIS ULCERATIVE [None]
  - COLONIC POLYP [None]
  - INTESTINAL PERFORATION [None]
  - INFLAMMATORY BOWEL DISEASE [None]
  - DEPRESSION [None]
